FAERS Safety Report 7282539-7 (Version None)
Quarter: 2011Q1

REPORT INFORMATION
  Report Type: 
  Country: None (occurrence: None)
  Receive Date: 20110209
  Receipt Date: 20110128
  Transmission Date: 20110831
  Serious: Yes (Death, Hospitalization)
  Sender: FDA-Public Use
  Company Number: CA-JNJFOC-20110200114

PATIENT
  Age: 75 Year
  Sex: Female
  Weight: 52 kg

DRUGS (11)
  1. LEFLUNOMIDE [Concomitant]
     Indication: RHEUMATOID ARTHRITIS
     Route: 048
  2. CIPRALEX [Concomitant]
     Indication: DEPRESSION
     Route: 048
  3. PREDNISONE [Concomitant]
     Indication: RHEUMATOID ARTHRITIS
     Route: 048
  4. CELEBREX [Concomitant]
     Indication: RHEUMATOID ARTHRITIS
  5. ARTHROTEC [Concomitant]
     Indication: RHEUMATOID ARTHRITIS
     Route: 048
  6. METHOTREXATE [Concomitant]
     Indication: RHEUMATOID ARTHRITIS
     Route: 048
  7. ARTHROTEC [Concomitant]
     Indication: OSTEOARTHRITIS
     Route: 048
  8. ACCURETIC [Concomitant]
     Indication: HYPERTENSION
     Dosage: DOSE 20/25
     Route: 048
  9. TRAZODONE [Concomitant]
     Indication: ANXIETY
     Route: 048
  10. REMICADE [Suspect]
     Indication: RHEUMATOID ARTHRITIS
     Route: 042
  11. AMLODIPINE [Concomitant]
     Indication: HYPERTENSION
     Route: 048

REACTIONS (9)
  - MULTI-ORGAN FAILURE [None]
  - CARDIAC FAILURE CONGESTIVE [None]
  - HYPOKALAEMIA [None]
  - RENAL FAILURE ACUTE [None]
  - CANDIDA SEPSIS [None]
  - PNEUMONIA ASPIRATION [None]
  - DEHYDRATION [None]
  - PULMONARY OEDEMA [None]
  - HYPONATRAEMIA [None]
